FAERS Safety Report 6137681-0 (Version None)
Quarter: 2009Q1

REPORT INFORMATION
  Report Type: 
  Country: None (occurrence: None)
  Receive Date: 20090326
  Receipt Date: 20090311
  Transmission Date: 20090719
  Serious: Yes (Other)
  Sender: FDA-Public Use
  Company Number: 2009S1004328

PATIENT
  Age: 50 Year
  Sex: Male

DRUGS (3)
  1. METFORMIN HCL [Suspect]
     Indication: DIABETES MELLITUS
     Dosage: 2 DF;TWICE A DAY; ORAL
     Route: 048
     Dates: start: 20090303, end: 20090303
  2. GLICLAZIDE [Concomitant]
  3. SODIUM CHLORIDE [Concomitant]

REACTIONS (2)
  - BLISTER [None]
  - INFECTION [None]
